FAERS Safety Report 7288413-4 (Version None)
Quarter: 2011Q1

REPORT INFORMATION
  Report Type: 
  Country: None (occurrence: None)
  Receive Date: 20110211
  Receipt Date: 20110209
  Transmission Date: 20110831
  Serious: Yes (Hospitalization, Other)
  Sender: FDA-Public Use
  Company Number: A0890734A

PATIENT
  Age: 77 Year
  Sex: Male
  Weight: 81 kg

DRUGS (18)
  1. PLAVIX [Concomitant]
     Dates: start: 20100201
  2. LIPITOR [Concomitant]
  3. MULTI-VITAMIN [Concomitant]
  4. SENOKOT [Concomitant]
  5. IMDUR [Concomitant]
  6. CHLORAMBUCIL [Suspect]
     Dosage: 4MG THREE TIMES PER DAY
     Route: 048
     Dates: start: 20100906, end: 20100911
  7. LOPRESSOR [Concomitant]
  8. TRAZODONE [Concomitant]
  9. FLOMAX [Concomitant]
  10. KEPPRA [Concomitant]
  11. FIBERCON [Concomitant]
  12. LASIX [Concomitant]
  13. ASPIRIN [Concomitant]
     Dates: start: 20100201
  14. PROVENTIL [Concomitant]
  15. PROTONIX [Concomitant]
  16. SYNTHROID [Concomitant]
  17. FERROUS SULFATE TAB [Concomitant]
  18. ZYLOPRIM [Concomitant]

REACTIONS (17)
  - ACUTE MYOCARDIAL INFARCTION [None]
  - TROPONIN INCREASED [None]
  - ECHOCARDIOGRAM ABNORMAL [None]
  - CHEST DISCOMFORT [None]
  - PNEUMONIA ASPIRATION [None]
  - ASPIRATION [None]
  - DYSPHAGIA [None]
  - PLEURAL EFFUSION [None]
  - CHEST PAIN [None]
  - CARDIAC FAILURE CONGESTIVE [None]
  - BUNDLE BRANCH BLOCK LEFT [None]
  - ELECTROCARDIOGRAM ABNORMAL [None]
  - MYOCARDIAL INFARCTION [None]
  - DYSPNOEA [None]
  - INTERSTITIAL LUNG DISEASE [None]
  - ISCHAEMIC CARDIOMYOPATHY [None]
  - VENTRICULAR DYSFUNCTION [None]
